FAERS Safety Report 5516914-5 (Version None)
Quarter: 2007Q4

REPORT INFORMATION
  Report Type: 
  Country: None (occurrence: None)
  Receive Date: 20071114
  Receipt Date: 20070531
  Transmission Date: 20080405
  Serious: No
  Sender: FDA-Public Use
  Company Number: A0653455A

PATIENT
  Age: 27 Year
  Sex: Female

DRUGS (1)
  1. COMMIT [Suspect]

REACTIONS (4)
  - ASTHENIA [None]
  - DYSPEPSIA [None]
  - HEART RATE INCREASED [None]
  - PHARYNGOLARYNGEAL PAIN [None]
